FAERS Safety Report 8422772-1 (Version None)
Quarter: 2012Q2

REPORT INFORMATION
  Report Type: 
  Country: None (occurrence: None)
  Receive Date: 20120323
  Receipt Date: 20111111
  Transmission Date: 20120825
  Serious: Yes (Other)
  Sender: FDA-Public Use
  Company Number: 163-21880-11092736

PATIENT
  Age: 83 Year
  Sex: Female

DRUGS (9)
  1. DIOVAN [Concomitant]
  2. NIACIN [Concomitant]
  3. BLOOD (BLOOD AND RELATED PRODUCTS) [Concomitant]
  4. CRESTOR [Concomitant]
  5. VERAPAMIL [Concomitant]
  6. LENALIDOMIDE [Suspect]
     Indication: MYELODYSPLASTIC SYNDROME
     Dosage: 10 MG, QD, PO, 5 MG, QD, PO, 5 MG, QD, PO
     Route: 048
     Dates: start: 20110814
  7. LENALIDOMIDE [Suspect]
     Indication: MYELODYSPLASTIC SYNDROME
     Dosage: 10 MG, QD, PO, 5 MG, QD, PO, 5 MG, QD, PO
     Route: 048
     Dates: start: 20110917
  8. LENALIDOMIDE [Suspect]
     Indication: MYELODYSPLASTIC SYNDROME
     Dosage: 10 MG, QD, PO, 5 MG, QD, PO, 5 MG, QD, PO
     Route: 048
     Dates: start: 20110906, end: 20110915
  9. FOLIC ACID [Concomitant]

REACTIONS (3)
  - PLATELET COUNT DECREASED [None]
  - PRURITUS [None]
  - OEDEMA PERIPHERAL [None]
